FAERS Safety Report 17240690 (Version 1)
Quarter: 2020Q1

REPORT INFORMATION
  Report Type: Spontaneous
  Country: GB (occurrence: GB)
  Receive Date: 20200107
  Receipt Date: 20200107
  Transmission Date: 20200409
  Serious: Yes (Disabling)
  Sender: FDA-Public Use
  Company Number: GB-TEVA-2019-GB-1162295

PATIENT
  Age: 79 Year
  Sex: Male

DRUGS (1)
  1. ROSUVASTATIN. [Suspect]
     Active Substance: ROSUVASTATIN
     Dosage: 3 MG
     Route: 065

REACTIONS (3)
  - Musculoskeletal disorder [Unknown]
  - Arthritis [Unknown]
  - Myalgia [Unknown]
